FAERS Safety Report 5405537-4 (Version None)
Quarter: 2007Q3

REPORT INFORMATION
  Report Type: 
  Country: None (occurrence: None)
  Receive Date: 20070803
  Receipt Date: 20070724
  Transmission Date: 20080115
  Serious: Yes (Other)
  Sender: FDA-Public Use
  Company Number: PH-PFIZER INC-2007061946

PATIENT
  Age: 82 Year
  Sex: Female

DRUGS (3)
  1. SULPERAZONE [Suspect]
     Indication: ASTHMA
     Route: 042
  2. SALBUTAMOL [Concomitant]
  3. HYDROCORTISONE [Concomitant]

REACTIONS (1)
  - STEVENS-JOHNSON SYNDROME [None]
